FAERS Safety Report 18024806 (Version 1)
Quarter: 2020Q3

REPORT INFORMATION
  Report Type: Spontaneous
  Country: US (occurrence: US)
  Receive Date: 20200715
  Receipt Date: 20200715
  Transmission Date: 20201103
  Serious: No
  Sender: FDA-Public Use
  Company Number: None

PATIENT
  Age: 72 Year
  Sex: Female
  Weight: 111.15 kg

DRUGS (13)
  1. TRIAMTERENE. [Concomitant]
     Active Substance: TRIAMTERENE
  2. VITAMIN [Concomitant]
     Active Substance: VITAMINS
  3. XYZAL [Concomitant]
     Active Substance: LEVOCETIRIZINE DIHYDROCHLORIDE
  4. VITAMIN C [Concomitant]
     Active Substance: ASCORBIC ACID
  5. ENTRESTO [Suspect]
     Active Substance: SACUBITRIL\VALSARTAN
     Indication: BLOOD PRESSURE MEASUREMENT
     Dosage: ?          QUANTITY:180 TABLET(S);?
     Route: 048
     Dates: start: 20200714, end: 20200715
  6. CALCIUM+D [Concomitant]
     Active Substance: CALCIUM\VITAMIN D
  7. XARELTO [Concomitant]
     Active Substance: RIVAROXABAN
  8. METFORMIN ER [Concomitant]
     Active Substance: METFORMIN HYDROCHLORIDE
  9. COLESTAPOL [Concomitant]
  10. ASPIRIN. [Concomitant]
     Active Substance: ASPIRIN
  11. METOPROLOL. [Concomitant]
     Active Substance: METOPROLOL
  12. FLACK SEED OIL [Concomitant]
  13. GARLIC PILLS [Concomitant]

REACTIONS (5)
  - Cough [None]
  - Diarrhoea [None]
  - Vision blurred [None]
  - Disorientation [None]
  - Tinnitus [None]

NARRATIVE: CASE EVENT DATE: 20200715
